FAERS Safety Report 14686171 (Version 1)
Quarter: 2018Q1

REPORT INFORMATION
  Report Type: Spontaneous
  Country: US (occurrence: US)
  Receive Date: 20180326
  Receipt Date: 20180326
  Transmission Date: 20180509
  Serious: No
  Sender: FDA-Public Use
  Company Number: None

PATIENT
  Sex: Female

DRUGS (3)
  1. WELLBUTRIN [Concomitant]
     Active Substance: BUPROPION HYDROCHLORIDE
  2. NICOTINE PATCHES [Suspect]
     Active Substance: NICOTINE
  3. NICOTINE GUM [Suspect]
     Active Substance: NICOTINE

REACTIONS (1)
  - Drug ineffective [None]
